FAERS Safety Report 17149039 (Version 1)
Quarter: 2019Q4

REPORT INFORMATION
  Report Type: Report from Study
  Country: US (occurrence: US)
  Receive Date: 20191213
  Receipt Date: 20191213
  Transmission Date: 20200122
  Serious: Yes (Hospitalization)
  Sender: FDA-Public Use
  Company Number: US-ROCHE-2396886

PATIENT
  Sex: Male
  Weight: 71.73 kg

DRUGS (2)
  1. KEPPRA [Concomitant]
     Active Substance: LEVETIRACETAM
     Indication: SEIZURE
  2. RITUXAN [Suspect]
     Active Substance: RITUXIMAB
     Indication: IMMUNE THROMBOCYTOPENIC PURPURA
     Dosage: INFUNDA 675 MILI GRAMOS INTRAVENOSAMENTE CADA SEMA.
     Route: 042
     Dates: start: 2019

REACTIONS (7)
  - Partial seizures [Recovered/Resolved]
  - Off label use [Unknown]
  - Product use in unapproved indication [Unknown]
  - Cerebrovascular accident [Recovered/Resolved]
  - Dehydration [Recovered/Resolved]
  - Electrolyte imbalance [Recovered/Resolved]
  - Confusional state [Recovered/Resolved]

NARRATIVE: CASE EVENT DATE: 2019
